FAERS Safety Report 6256712-0 (Version None)
Quarter: 2009Q3

REPORT INFORMATION
  Report Type: 
  Country: None (occurrence: None)
  Receive Date: 20090706
  Receipt Date: 20090624
  Transmission Date: 20100115
  Serious: Yes (Hospitalization)
  Sender: FDA-Public Use
  Company Number: FR-BIOGENIDEC-2009BI019625

PATIENT
  Age: 41 Year
  Sex: Male
  Weight: 70 kg

DRUGS (4)
  1. TYSABRI [Suspect]
     Indication: MULTIPLE SCLEROSIS
     Route: 042
     Dates: start: 20080519
  2. CARBAMAZEPINE [Concomitant]
  3. ANTIDEPRESSANTS [Concomitant]
  4. ANTI-MUSCARINIC AGENTS [Concomitant]

REACTIONS (1)
  - NEPHROLITHIASIS [None]
